FAERS Safety Report 7653379-1 (Version None)
Quarter: 2011Q3

REPORT INFORMATION
  Report Type: 
  Country: None (occurrence: None)
  Receive Date: 20110803
  Receipt Date: 20110729
  Transmission Date: 20111222
  Serious: Yes (Other)
  Sender: FDA-Public Use
  Company Number: BR-PFIZER INC-2011168536

PATIENT
  Age: 47 Year
  Sex: Female
  Weight: 57 kg

DRUGS (4)
  1. SERTRALINE HYDROCHLORIDE [Concomitant]
     Indication: ANXIETY
     Dosage: 50 MG, 1X/DAY
     Dates: start: 20110720
  2. ALPRAZOLAM [Suspect]
     Indication: ANXIETY
     Dosage: 0.25 MG, 1X/DAY AT NIGHT
     Route: 048
     Dates: start: 20110719
  3. CENTRUM [Concomitant]
     Indication: ANAEMIA
     Dosage: 1 TABLET PER DAY
     Dates: start: 20110601
  4. FERROUS SULFATE [Concomitant]
     Indication: ANAEMIA
     Dosage: 250 MG, 2X/DAY
     Dates: start: 20110601

REACTIONS (4)
  - SERUM FERRITIN DECREASED [None]
  - INSOMNIA [None]
  - DECREASED APPETITE [None]
  - ABDOMINAL PAIN UPPER [None]
